FAERS Safety Report 7221578-9 (Version None)
Quarter: 2011Q1

REPORT INFORMATION
  Report Type: 
  Country: None (occurrence: None)
  Receive Date: 20110112
  Receipt Date: 20110106
  Transmission Date: 20110831
  Serious: Yes (Hospitalization)
  Sender: FDA-Public Use
  Company Number: FR-PFIZER INC-2011004433

PATIENT
  Age: 4 Year
  Sex: Female
  Weight: 35.3 kg

DRUGS (2)
  1. SOMATROPIN [Suspect]
     Dosage: 7.7 MG, WEEKLY
     Dates: start: 20100529
  2. SOMATROPIN [Suspect]
     Indication: PRADER-WILLI SYNDROME
     Dosage: 7.7 MG, WEEKLY
     Dates: start: 20081202, end: 20100510

REACTIONS (3)
  - CONDITION AGGRAVATED [None]
  - SLEEP APNOEA SYNDROME [None]
  - OBESITY [None]
